FAERS Safety Report 13769859 (Version 2)
Quarter: 2017Q3

REPORT INFORMATION
  Report Type: Report from Study
  Country: US (occurrence: US)
  Receive Date: 20170719
  Receipt Date: 20170725
  Transmission Date: 20171127
  Serious: No
  Sender: FDA-Public Use
  Company Number: US-ALEXION PHARMACEUTICALS INC.-A201707964

PATIENT
  Sex: Female

DRUGS (1)
  1. SOLIRIS [Suspect]
     Active Substance: ECULIZUMAB
     Indication: PRODUCT USED FOR UNKNOWN INDICATION
     Dosage: UNK
     Route: 042

REACTIONS (14)
  - Tension headache [Unknown]
  - Blood lactate dehydrogenase abnormal [Unknown]
  - Diarrhoea [Unknown]
  - Anxiety [Unknown]
  - Medical device site infection [Unknown]
  - Pre-existing condition improved [Unknown]
  - Muscle spasms [Unknown]
  - Vision blurred [Unknown]
  - Balance disorder [Unknown]
  - Chest pain [Unknown]
  - Insomnia [Unknown]
  - Hypoaesthesia [Unknown]
  - Ocular hyperaemia [Unknown]
  - Therapeutic response unexpected [Unknown]

NARRATIVE: CASE EVENT DATE: 20170427
